FAERS Safety Report 22349906 (Version 1)
Quarter: 2023Q2

REPORT INFORMATION
  Report Type: Spontaneous
  Country: RS (occurrence: RS)
  Receive Date: 20230522
  Receipt Date: 20230522
  Transmission Date: 20230721
  Serious: Yes (Death, Hospitalization, Other)
  Sender: FDA-Public Use
  Company Number: RS-002147023-NVSC2023RS115450

PATIENT
  Age: 59 Year
  Sex: Female

DRUGS (7)
  1. TAFINLAR [Suspect]
     Active Substance: DABRAFENIB MESYLATE
     Indication: Product used for unknown indication
     Dosage: UNK
     Route: 065
     Dates: start: 202009, end: 202102
  2. TAFINLAR [Suspect]
     Active Substance: DABRAFENIB MESYLATE
     Dosage: UNK
     Route: 065
     Dates: start: 202110
  3. MEKINIST [Suspect]
     Active Substance: TRAMETINIB DIMETHYL SULFOXIDE
     Indication: Product used for unknown indication
     Dosage: UNK
     Route: 065
     Dates: start: 202009, end: 202102
  4. MEKINIST [Suspect]
     Active Substance: TRAMETINIB DIMETHYL SULFOXIDE
     Dosage: UNK
     Route: 065
     Dates: start: 202110
  5. NIVOLUMAB [Suspect]
     Active Substance: NIVOLUMAB
     Indication: Product used for unknown indication
     Dosage: UNK (9 CYCLES WERE ADMINISTERED)
     Route: 065
     Dates: start: 202102, end: 202108
  6. VEMURAFENIB [Suspect]
     Active Substance: VEMURAFENIB
     Indication: Product used for unknown indication
     Dosage: UNK (3RD LINE OF THERAPY)
     Route: 065
     Dates: start: 202108
  7. COBIMETINIB [Suspect]
     Active Substance: COBIMETINIB
     Indication: Product used for unknown indication
     Dosage: UNK ( 3RD LINE OF THERAPY)
     Route: 065
     Dates: start: 202108

REACTIONS (10)
  - Tibia fracture [Fatal]
  - Malignant neoplasm progression [Unknown]
  - Hypokalaemia [Unknown]
  - Blood creatine phosphokinase MB increased [Unknown]
  - Neutrophilia [Unknown]
  - Lymphopenia [Unknown]
  - Hyponatraemia [Unknown]
  - Blood urea increased [Unknown]
  - Malaise [Unknown]
  - Fatigue [Unknown]

NARRATIVE: CASE EVENT DATE: 20211101
